FAERS Safety Report 9719390 (Version 3)
Quarter: 2014Q3

REPORT INFORMATION
  Report Type: Spontaneous
  Country: CA (occurrence: CA)
  Receive Date: 20131128
  Receipt Date: 20140923
  Transmission Date: 20150326
  Serious: Yes (Other)
  Sender: FDA-Public Use
  Company Number: CA-ROCHE-1309531

PATIENT
  Age: 57 Year
  Sex: Female

DRUGS (17)
  1. HUMIRA [Suspect]
     Active Substance: ADALIMUMAB
     Indication: CROHN^S DISEASE
     Route: 058
  2. REMICADE [Suspect]
     Active Substance: INFLIXIMAB
     Route: 051
  3. REMICADE [Suspect]
     Active Substance: INFLIXIMAB
     Route: 042
  4. PREDNISONE. [Suspect]
     Active Substance: PREDNISONE
     Route: 065
  5. REMICADE [Suspect]
     Active Substance: INFLIXIMAB
     Route: 042
  6. REMICADE [Suspect]
     Active Substance: INFLIXIMAB
     Route: 050
  7. TACROLIMUS. [Suspect]
     Active Substance: TACROLIMUS
     Indication: PROPHYLAXIS AGAINST TRANSPLANT REJECTION
     Route: 065
  8. REMICADE [Suspect]
     Active Substance: INFLIXIMAB
     Route: 051
  9. REMICADE [Suspect]
     Active Substance: INFLIXIMAB
     Route: 050
  10. PREDNISONE. [Suspect]
     Active Substance: PREDNISONE
     Indication: PROPHYLAXIS AGAINST TRANSPLANT REJECTION
     Route: 065
  11. MYCOPHENOLATE MOFETIL. [Suspect]
     Active Substance: MYCOPHENOLATE MOFETIL
     Indication: PROPHYLAXIS AGAINST TRANSPLANT REJECTION
     Route: 065
  12. REMICADE [Suspect]
     Active Substance: INFLIXIMAB
     Route: 065
  13. REMICADE [Suspect]
     Active Substance: INFLIXIMAB
     Route: 065
  14. HUMIRA [Suspect]
     Active Substance: ADALIMUMAB
     Route: 058
  15. HUMIRA [Suspect]
     Active Substance: ADALIMUMAB
     Route: 058
  16. HUMIRA [Suspect]
     Active Substance: ADALIMUMAB
     Route: 058
  17. REMICADE [Suspect]
     Active Substance: INFLIXIMAB
     Indication: CROHN^S DISEASE
     Route: 065

REACTIONS (5)
  - Dysplasia [Unknown]
  - Drug ineffective [Unknown]
  - Off label use [Unknown]
  - Colectomy [Unknown]
  - Colorectal adenocarcinoma [Unknown]
